FAERS Safety Report 7995211-2 (Version None)
Quarter: 2011Q4

REPORT INFORMATION
  Report Type: 
  Country: None (occurrence: None)
  Receive Date: 20111220
  Receipt Date: 20111209
  Transmission Date: 20120403
  Serious: Yes (Hospitalization, Other)
  Sender: FDA-Public Use
  Company Number: US-JNJFOC-20111001145

PATIENT
  Sex: Male
  Weight: 48.08 kg

DRUGS (18)
  1. ZYTIGA [Suspect]
     Route: 048
     Dates: start: 20110901
  2. METOPROLOL TARTRATE [Concomitant]
     Indication: BLOOD PRESSURE
     Route: 048
     Dates: start: 19810101
  3. ZYTIGA [Suspect]
     Route: 048
     Dates: start: 20111001
  4. ZYTIGA [Suspect]
     Indication: PROSTATE CANCER METASTATIC
     Route: 048
     Dates: start: 20110801, end: 20110901
  5. LASIX [Concomitant]
     Indication: OEDEMA
     Route: 048
     Dates: start: 19910101
  6. LASIX [Concomitant]
     Route: 048
     Dates: start: 20110723
  7. LASIX [Concomitant]
     Route: 048
     Dates: start: 19910101
  8. TRAZODONE HCL [Concomitant]
     Indication: NERVOUSNESS
     Route: 065
  9. PREDNISONE TAB [Suspect]
     Route: 048
     Dates: start: 20110801
  10. PREDNISONE TAB [Suspect]
     Route: 048
     Dates: start: 20110701
  11. TOPROL-XL [Concomitant]
     Indication: BLOOD PRESSURE
     Route: 048
     Dates: start: 19910101
  12. SPIRONOLACTONE [Concomitant]
     Indication: FLUID RETENTION
     Route: 048
     Dates: start: 19910101
  13. SPIRONOLACTONE [Concomitant]
     Route: 048
     Dates: start: 20110730
  14. TRAZODONE HCL [Concomitant]
     Indication: FEELING JITTERY
     Route: 065
  15. ZYTIGA [Suspect]
     Route: 048
     Dates: start: 20110701, end: 20110701
  16. PREDNISONE TAB [Suspect]
     Indication: PROSTATE CANCER METASTATIC
     Route: 048
     Dates: start: 20110701
  17. TOPROL-XL [Concomitant]
     Route: 048
  18. LASIX [Concomitant]
     Indication: FLUID RETENTION
     Route: 048
     Dates: start: 20110723

REACTIONS (27)
  - FEELING JITTERY [None]
  - PRURITUS [None]
  - SKIN ATROPHY [None]
  - HYPERSOMNIA [None]
  - MUSCLE TWITCHING [None]
  - RASH [None]
  - WEIGHT INCREASED [None]
  - CARDIAC FAILURE [None]
  - CARDIAC DISORDER [None]
  - CONVERSION DISORDER [None]
  - RESTLESS LEGS SYNDROME [None]
  - FEELING ABNORMAL [None]
  - DRUG INEFFECTIVE [None]
  - ANXIETY [None]
  - LABORATORY TEST ABNORMAL [None]
  - FEAR [None]
  - DEPRESSED MOOD [None]
  - FLUID RETENTION [None]
  - DYSPHONIA [None]
  - NERVOUSNESS [None]
  - HAEMOGLOBIN DECREASED [None]
  - FATIGUE [None]
  - SOMNOLENCE [None]
  - PROSTATIC SPECIFIC ANTIGEN INCREASED [None]
  - DRUG INTOLERANCE [None]
  - WEIGHT DECREASED [None]
  - ASTHENIA [None]
